FAERS Safety Report 5041499-X (Version None)
Quarter: 2006Q2

REPORT INFORMATION
  Report Type: 
  Country: None (occurrence: None)
  Receive Date: 20060628
  Receipt Date: 20060615
  Transmission Date: 20061013
  Serious: Yes (Hospitalization, Other)
  Sender: FDA-Public Use
  Company Number: 163-21880-06030591

PATIENT
  Age: 68 Year
  Sex: Female

DRUGS (5)
  1. REVLIMID [Suspect]
     Indication: MYELODYSPLASTIC SYNDROME
     Dosage: 10 MG, DAILY, ORAL; SEE IMAGE
     Route: 048
     Dates: start: 20060220, end: 20060315
  2. REVLIMID [Suspect]
     Indication: MYELODYSPLASTIC SYNDROME
     Dosage: 10 MG, DAILY, ORAL; SEE IMAGE
     Route: 048
     Dates: start: 20060325, end: 20060401
  3. REVLIMID [Suspect]
     Indication: MYELODYSPLASTIC SYNDROME
     Dosage: 10 MG, DAILY, ORAL; SEE IMAGE
     Route: 048
     Dates: start: 20060502, end: 20060511
  4. REVLIMID [Suspect]
     Indication: MYELODYSPLASTIC SYNDROME
     Dosage: 10 MG, DAILY, ORAL; SEE IMAGE
     Route: 048
     Dates: start: 20060523, end: 20060526
  5. COUMADIN [Concomitant]

REACTIONS (15)
  - ATELECTASIS [None]
  - DEEP VEIN THROMBOSIS [None]
  - FATIGUE [None]
  - GINGIVAL BLEEDING [None]
  - HAEMATOCRIT DECREASED [None]
  - HAEMOGLOBIN DECREASED [None]
  - KIDNEY INFECTION [None]
  - MYALGIA [None]
  - NEUTROPHIL COUNT DECREASED [None]
  - PAIN IN EXTREMITY [None]
  - PLATELET COUNT DECREASED [None]
  - PULMONARY FIBROSIS [None]
  - RASH [None]
  - TONGUE BLISTERING [None]
  - WHITE BLOOD CELL COUNT DECREASED [None]
